FAERS Safety Report 24433027 (Version 1)
Quarter: 2024Q4

REPORT INFORMATION
  Report Type: Other
  Country: HK (occurrence: HK)
  Receive Date: 20241014
  Receipt Date: 20241014
  Transmission Date: 20250115
  Serious: Yes (Hospitalization, Other)
  Sender: ANI
  Company Number: HK-ANIPHARMA-012502

PATIENT
  Age: 67 Year
  Sex: Male

DRUGS (5)
  1. CYCLOPHOSPHAMIDE [Suspect]
     Active Substance: CYCLOPHOSPHAMIDE
     Indication: Cerebral amyloid angiopathy
     Dosage: HIGH DOSE
  2. METHYLPREDNISOLONE [Concomitant]
     Active Substance: METHYLPREDNISOLONE
     Indication: Cerebral amyloid angiopathy
  3. PREDNISOLONE [Concomitant]
     Active Substance: PREDNISOLONE
     Indication: Cerebral amyloid angiopathy
     Route: 048
  4. AZATHIOPRINE [Concomitant]
     Active Substance: AZATHIOPRINE
     Indication: Cerebral amyloid angiopathy
  5. MYCOPHENOLATE MOFETIL [Concomitant]
     Active Substance: MYCOPHENOLATE MOFETIL
     Indication: Cerebral amyloid angiopathy

REACTIONS (1)
  - Osteomyelitis chronic [Recovering/Resolving]
